FAERS Safety Report 6936940-9 (Version None)
Quarter: 2010Q3

REPORT INFORMATION
  Report Type: 
  Country: None (occurrence: None)
  Receive Date: 20100823
  Receipt Date: 20100811
  Transmission Date: 20110219
  Serious: Yes (Hospitalization, Other)
  Sender: FDA-Public Use
  Company Number: JP-PFIZER INC-2010087953

PATIENT
  Age: 55 Year
  Sex: Male
  Weight: 67 kg

DRUGS (8)
  1. CHAMPIX [Suspect]
     Dosage: 0.5 MG, 1X/DAY
     Route: 048
     Dates: start: 20100702, end: 20100705
  2. ANPLAG [Concomitant]
     Dosage: 100 MG, 3X/DAY
     Dates: start: 20040701
  3. NEUROTROPIN [Concomitant]
     Dosage: 4 UNITS 3 TIMES DAILY
  4. MARZULENE [Concomitant]
     Dosage: UNK, 3 TIMES DAILY
  5. MYSLEE [Concomitant]
     Dosage: UNK
  6. LOXONIN [Concomitant]
     Dosage: UNK
  7. GLYCOL SALICYLATE [Concomitant]
     Dosage: UNK
  8. VOLTAREN [Concomitant]
     Dosage: UNK

REACTIONS (4)
  - ABDOMINAL PAIN [None]
  - AGGRESSION [None]
  - BIPOLAR DISORDER [None]
  - PYREXIA [None]
